FAERS Safety Report 25893803 (Version 1)
Quarter: 2025Q4

REPORT INFORMATION
  Report Type: Other
  Country: NZ (occurrence: NZ)
  Receive Date: 20251008
  Receipt Date: 20251008
  Transmission Date: 20260118
  Serious: Yes (Other)
  Sender: DOUGLAS PHARMACEUTICALS
  Company Number: NZ-DOUGLAS PHARMACEUTICALS US-2025DGL00326

PATIENT
  Age: 77 Year
  Sex: Male

DRUGS (1)
  1. CLOZAPINE [Suspect]
     Active Substance: CLOZAPINE
     Dosage: UNK

REACTIONS (12)
  - Pericardial effusion [Unknown]
  - Sepsis [Unknown]
  - Myocarditis [Unknown]
  - Pneumonia [Unknown]
  - White blood cell count increased [Unknown]
  - Neutrophil count increased [Unknown]
  - Lymphocyte count decreased [Unknown]
  - Haematocrit decreased [Unknown]
  - Haemoglobin decreased [Unknown]
  - Chest pain [Unknown]
  - Dyspnoea [Unknown]
  - Pleural effusion [Unknown]
